FAERS Safety Report 8138218-7 (Version None)
Quarter: 2012Q1

REPORT INFORMATION
  Report Type: 
  Country: None (occurrence: None)
  Receive Date: 20120215
  Receipt Date: 20120209
  Transmission Date: 20120608
  Serious: Yes (Life-Threatening, Hospitalization, Other)
  Sender: FDA-Public Use
  Company Number: PHHY2011JP30993

PATIENT
  Sex: Male

DRUGS (2)
  1. NEORAL [Suspect]
     Indication: PSORIASIS
     Dosage: 300 MG, DAILY
     Route: 048
     Dates: start: 20110216
  2. NEORAL [Suspect]
     Dosage: 150 MG/DAILY
     Route: 048
     Dates: start: 20110328, end: 20110329

REACTIONS (8)
  - TOXICITY TO VARIOUS AGENTS [None]
  - ALTERED STATE OF CONSCIOUSNESS [None]
  - RENAL IMPAIRMENT [None]
  - CONVULSION [None]
  - HEPATIC FUNCTION ABNORMAL [None]
  - TOXIC ENCEPHALOPATHY [None]
  - IMMUNOSUPPRESSANT DRUG LEVEL INCREASED [None]
  - NEUROTOXICITY [None]
